FAERS Safety Report 9118828 (Version 1)
Quarter: 2013Q1

REPORT INFORMATION
  Report Type: Spontaneous
  Country: FI (occurrence: FI)
  Receive Date: 20130226
  Receipt Date: 20130226
  Transmission Date: 20140127
  Serious: Yes (Hospitalization, Disabling, Other)
  Sender: FDA-Public Use
  Company Number: PHHY2012FI027425

PATIENT
  Age: 48 Year
  Sex: Female

DRUGS (4)
  1. ZOMETA [Suspect]
     Indication: METASTASES TO BONE
     Dates: start: 200806, end: 201203
  2. HERCEPTIN ^GENENTECH^ [Suspect]
     Indication: BREAST CANCER METASTATIC
     Dosage: 380 MG, UNK
     Route: 042
     Dates: start: 200608
  3. PACLITAXEL [Concomitant]
     Indication: BREAST CANCER
     Dosage: 120 MG, UNK
     Route: 042
     Dates: start: 201110
  4. TAXANES [Concomitant]

REACTIONS (3)
  - Femur fracture [Not Recovered/Not Resolved]
  - Injury [Unknown]
  - Pain in extremity [Not Recovered/Not Resolved]
